FAERS Safety Report 10706001 (Version 3)
Quarter: 2015Q1

REPORT INFORMATION
  Report Type: Spontaneous
  Country: US (occurrence: US)
  Receive Date: 20150113
  Receipt Date: 20150113
  Transmission Date: 20150721
  Serious: No
  Sender: FDA-Public Use
  Company Number: US-BRISTOL-MYERS SQUIBB COMPANY-21503271

PATIENT
  Age: 21 Year
  Sex: Male

DRUGS (4)
  1. ABILIFY [Suspect]
     Active Substance: ARIPIPRAZOLE
     Indication: AUTISM SPECTRUM DISORDER
     Dosage: 2 MG, UNK, QAM
     Route: 048
     Dates: start: 20140822, end: 20141015
  2. ABILIFY [Suspect]
     Active Substance: ARIPIPRAZOLE
     Dosage: 2.5 UNK, UNK
     Route: 048
  3. ABILIFY [Suspect]
     Active Substance: ARIPIPRAZOLE
     Dosage: 5 MG, UNK
     Route: 048
  4. CLONIDINE HCL [Concomitant]
     Active Substance: CLONIDINE HYDROCHLORIDE

REACTIONS (7)
  - Extrapyramidal disorder [Recovered/Resolved]
  - Aggression [Unknown]
  - Eye movement disorder [Recovered/Resolved]
  - Wrong technique in drug usage process [Unknown]
  - Lip disorder [Recovered/Resolved]
  - Tongue disorder [Recovered/Resolved]
  - Vertigo [Unknown]

NARRATIVE: CASE EVENT DATE: 201409
